FAERS Safety Report 23387159 (Version 2)
Quarter: 2024Q1

REPORT INFORMATION
  Report Type: Spontaneous
  Country: US (occurrence: None)
  Receive Date: 20240110
  Receipt Date: 20240130
  Transmission Date: 20240410
  Serious: Yes (Hospitalization)
  Sender: FDA-Public Use
  Company Number: US-FARMAPROD-202307-2279

PATIENT
  Sex: Female
  Weight: 104.42 kg

DRUGS (34)
  1. OXERVATE [Suspect]
     Active Substance: CENEGERMIN-BKBJ
     Indication: Neurotrophic keratopathy
     Route: 047
     Dates: start: 20230720, end: 20230913
  2. OXERVATE [Suspect]
     Active Substance: CENEGERMIN-BKBJ
     Route: 047
     Dates: start: 20231221
  3. OFLOXACIN [Concomitant]
     Active Substance: OFLOXACIN
     Dosage: RIGHT EYE
  4. BACITRACIN-POLYMYXIN [Concomitant]
     Dosage: LEFT EYE
  5. MAGNESIUM CARBONATE [Concomitant]
     Active Substance: MAGNESIUM CARBONATE
  6. ASPIRIN [Concomitant]
     Active Substance: ASPIRIN
  7. ALENDRONATE SODIUM [Concomitant]
     Active Substance: ALENDRONATE SODIUM
  8. ANORO ELLIPTA [Concomitant]
     Active Substance: UMECLIDINIUM BROMIDE\VILANTEROL TRIFENATATE
     Dosage: 62.5-25 MCG BLISTER WITH DEVICE
  9. TRAZODONE HCL [Concomitant]
     Active Substance: TRAZODONE HYDROCHLORIDE
  10. FISH OIL [Concomitant]
     Active Substance: FISH OIL
  11. MELOXICAM [Concomitant]
     Active Substance: MELOXICAM
  12. LORAZEPAM [Concomitant]
     Active Substance: LORAZEPAM
  13. DOXYCYCLINE HYCLATE [Concomitant]
     Active Substance: DOXYCYCLINE HYCLATE
  14. COENZYME Q10 [Concomitant]
     Active Substance: DIETARY SUPPLEMENT\UBIDECARENONE
  15. PROAIR RESPICLICK [Concomitant]
     Active Substance: ALBUTEROL SULFATE
  16. GLIPIZIDE [Concomitant]
     Active Substance: GLIPIZIDE
     Dosage: FOR 24 HOURS
  17. ATORVASTATIN CALCIUM [Concomitant]
     Active Substance: ATORVASTATIN CALCIUM
  18. TUMS ULTRA [Concomitant]
     Active Substance: CALCIUM CARBONATE
     Dosage: 400 (1000)
  19. TORSEMIDE [Concomitant]
     Active Substance: TORSEMIDE
  20. SPIRONOLACTONE [Concomitant]
     Active Substance: SPIRONOLACTONE
  21. PREGABALIN [Concomitant]
     Active Substance: PREGABALIN
  22. MORPHINE SULFATE [Concomitant]
     Active Substance: MORPHINE SULFATE
  23. METFORMIN ER OSMOTIC [Concomitant]
     Dosage: 24 HOURS
  24. SERTRALINE HYDROCHLORIDE [Concomitant]
     Active Substance: SERTRALINE HYDROCHLORIDE
  25. NARCAN [Concomitant]
     Active Substance: NALOXONE HYDROCHLORIDE
     Dosage: SPRAY
  26. THERATEARS [Concomitant]
     Active Substance: CARBOXYMETHYLCELLULOSE SODIUM
  27. VITAMIN C [Concomitant]
     Active Substance: ASCORBIC ACID
  28. FARXIGA [Concomitant]
     Active Substance: DAPAGLIFLOZIN PROPANEDIOL
  29. CETIRIZINE HCL [Concomitant]
     Active Substance: CETIRIZINE HYDROCHLORIDE
  30. CLONAZEPAM [Concomitant]
     Active Substance: CLONAZEPAM
  31. ALBUTEROL SULFATE [Concomitant]
     Active Substance: ALBUTEROL SULFATE
     Dosage: HYDROFLUOROALKANE.
  32. VITAMIN D3 [Concomitant]
     Active Substance: CHOLECALCIFEROL
  33. DUONEB [Concomitant]
     Active Substance: ALBUTEROL SULFATE\IPRATROPIUM BROMIDE
  34. TRAZODONE HCL [Concomitant]
     Active Substance: TRAZODONE HYDROCHLORIDE

REACTIONS (7)
  - Fall [Unknown]
  - Hypoglycaemic unconsciousness [Recovered/Resolved]
  - Cerebrovascular accident [Recovering/Resolving]
  - Corneal operation [Unknown]
  - Bronchitis [Unknown]
  - Eye pain [Unknown]
  - Inappropriate schedule of product administration [Unknown]
